FAERS Safety Report 14065529 (Version 3)
Quarter: 2017Q4

REPORT INFORMATION
  Report Type: Report from Study
  Country: US (occurrence: US)
  Receive Date: 20171009
  Receipt Date: 20171208
  Transmission Date: 20180321
  Serious: Yes (Other)
  Sender: FDA-Public Use
  Company Number: US-AMGEN-USASL2017149412

PATIENT
  Age: 5 Year
  Sex: Female

DRUGS (8)
  1. ENBREL [Suspect]
     Active Substance: ETANERCEPT
     Indication: JUVENILE IDIOPATHIC ARTHRITIS
     Dosage: 12.5 MG, QWK
     Route: 058
  2. MOMETASONE [Concomitant]
     Active Substance: MOMETASONE
     Indication: PSORIASIS
     Dosage: UNK UNK, QWK
     Route: 065
     Dates: start: 20170814
  3. FLUCONAZOLE. [Concomitant]
     Active Substance: FLUCONAZOLE
     Indication: PSORIASIS
     Dosage: UNK
     Dates: end: 20170814
  4. MTX [Concomitant]
     Active Substance: METHOTREXATE SODIUM
     Dosage: UNK
  5. FLUCONAZOLE. [Concomitant]
     Active Substance: FLUCONAZOLE
     Indication: PSORIASIS
     Dosage: UNK UNK, QD
     Route: 065
  6. MTX [Concomitant]
     Active Substance: METHOTREXATE SODIUM
     Dosage: 10 MG, QWK
     Route: 065
  7. MTX [Concomitant]
     Active Substance: METHOTREXATE SODIUM
     Dosage: UNK
     Route: 065
  8. FOLIC ACID. [Concomitant]
     Active Substance: FOLIC ACID
     Dosage: 1 MG, QD
     Route: 065

REACTIONS (2)
  - Psoriasis [Not Recovered/Not Resolved]
  - Beta haemolytic streptococcal infection [Recovering/Resolving]

NARRATIVE: CASE EVENT DATE: 20170814
